FAERS Safety Report 12167697 (Version 1)
Quarter: 2016Q1

REPORT INFORMATION
  Report Type: Spontaneous
  Country: BR (occurrence: BR)
  Receive Date: 20160310
  Receipt Date: 20160310
  Transmission Date: 20160526
  Serious: Yes (Other)
  Sender: FDA-Public Use
  Company Number: BR-ELI_LILLY_AND_COMPANY-BR201602010116

PATIENT
  Sex: Female
  Weight: 84 kg

DRUGS (11)
  1. METFORMIN [Concomitant]
     Active Substance: METFORMIN HYDROCHLORIDE
     Dosage: 850 MG, UNKNOWN
     Route: 065
  2. SUPRADYN                           /01742801/ [Concomitant]
     Dosage: UNK, UNKNOWN
     Route: 065
  3. OMEGA 3                            /01333901/ [Concomitant]
     Active Substance: FISH OIL\TOCOPHEROL
     Dosage: UNK, UNKNOWN
     Route: 065
  4. HUMULIN N [Suspect]
     Active Substance: INSULIN HUMAN
     Dosage: 10 IU, EACH EVENING
     Route: 058
  5. VITALUX                            /00322001/ [Concomitant]
     Dosage: UNK, UNKNOWN
     Route: 065
  6. LUCETTE [Concomitant]
     Dosage: UNK, UNKNOWN
     Route: 065
  7. HUMULIN N [Suspect]
     Active Substance: INSULIN HUMAN
     Indication: PRODUCT USED FOR UNKNOWN INDICATION
     Dosage: 34 IU, EACH MORNING
     Route: 058
  8. AAS [Concomitant]
     Active Substance: ASPIRIN
     Dosage: UNK, UNKNOWN
     Route: 065
  9. DIAMICRON [Concomitant]
     Active Substance: GLICLAZIDE
     Dosage: UNK, UNKNOWN
     Route: 065
  10. LOSARTAN. [Concomitant]
     Active Substance: LOSARTAN
     Dosage: UNK, UNKNOWN
     Route: 065
  11. HUMULIN N [Suspect]
     Active Substance: INSULIN HUMAN
     Dosage: 40 IU, EACH MORNING
     Route: 058

REACTIONS (7)
  - Osteomyelitis [Not Recovered/Not Resolved]
  - Parkinson^s disease [Unknown]
  - Blood glucose fluctuation [Unknown]
  - Malaise [Unknown]
  - Diabetic retinopathy [Not Recovered/Not Resolved]
  - Diabetic neuropathy [Unknown]
  - Oedema [Unknown]

NARRATIVE: CASE EVENT DATE: 2009
